FAERS Safety Report 16892181 (Version 2)
Quarter: 2019Q4

REPORT INFORMATION
  Report Type: Spontaneous
  Country: US (occurrence: US)
  Receive Date: 20191007
  Receipt Date: 20191031
  Transmission Date: 20200122
  Serious: Yes (Other)
  Sender: FDA-Public Use
  Company Number: US-TARO-2019TAR00672

PATIENT
  Age: 57 Year
  Sex: Female
  Weight: 53.52 kg

DRUGS (11)
  1. KETOCONAZOLE TABLETS USP 200 MG [Suspect]
     Active Substance: KETOCONAZOLE
     Indication: INFECTION
     Dosage: 200 MG, 1X/DAY
     Route: 048
     Dates: start: 20190118, end: 20190122
  2. KETOCONAZOLE SHAMPOO (MANUFACTURER UNKNOWN) [Suspect]
     Active Substance: KETOCONAZOLE
     Indication: UNEVALUABLE EVENT
     Dosage: UNK
     Dates: start: 201812, end: 201901
  3. IBUPROFEN. [Concomitant]
     Active Substance: IBUPROFEN
  4. ESSENTIAL OILS. [Concomitant]
     Active Substance: ESSENTIAL OILS
  5. SUBOXONE [Concomitant]
     Active Substance: BUPRENORPHINE HYDROCHLORIDE\NALOXONE HYDROCHLORIDE
  6. CYCLOBENZAPRINE. [Concomitant]
     Active Substance: CYCLOBENZAPRINE
     Dosage: OCCASIONALLY
  7. GABAPENTIN. [Concomitant]
     Active Substance: GABAPENTIN
  8. MELATONIN [Concomitant]
     Active Substance: MELATONIN
  9. SYNTHROID [Concomitant]
     Active Substance: LEVOTHYROXINE SODIUM
     Dosage: 100 ?G, 1X/DAY
  10. TRAZODONE [Concomitant]
     Active Substance: TRAZODONE HYDROCHLORIDE
  11. TEA TREE [Concomitant]
     Active Substance: GLYCERIN

REACTIONS (23)
  - Fall [Recovered/Resolved]
  - Eye discharge [Unknown]
  - Constipation [Unknown]
  - Loss of consciousness [Recovered/Resolved]
  - Unevaluable event [Unknown]
  - Pulmonary mass [Not Recovered/Not Resolved]
  - Insomnia [Unknown]
  - Dizziness [Unknown]
  - Dysphagia [Recovered/Resolved]
  - Incorrect product administration duration [Recovered/Resolved]
  - Confusional state [Recovered/Resolved]
  - Productive cough [Not Recovered/Not Resolved]
  - Paranasal sinus hypersecretion [Unknown]
  - Pruritus [Unknown]
  - Memory impairment [Unknown]
  - Tremor [Unknown]
  - Muscle spasms [Unknown]
  - Dyspnoea [Unknown]
  - Weight decreased [Recovering/Resolving]
  - Product prescribing error [Recovered/Resolved]
  - Eyelid disorder [Recovering/Resolving]
  - Chills [Unknown]
  - Heart rate increased [Unknown]

NARRATIVE: CASE EVENT DATE: 201901
